FAERS Safety Report 24649599 (Version 2)
Quarter: 2025Q3

REPORT INFORMATION
  Report Type: Report from Study
  Country: US (occurrence: US)
  Receive Date: 20241121
  Receipt Date: 20250803
  Transmission Date: 20251021
  Serious: Yes (Other)
  Sender: ALEXION PHARMACEUTICALS
  Company Number: US-AstraZeneca-CH-00748444A

PATIENT
  Sex: Male
  Weight: 81.633 kg

DRUGS (14)
  1. ACALABRUTINIB [Suspect]
     Active Substance: ACALABRUTINIB
     Indication: Chronic lymphocytic leukaemia
     Dosage: 100 MILLIGRAM, BID
  2. ASPIRIN [Concomitant]
     Active Substance: ASPIRIN
     Route: 065
  3. ATENOLOL [Concomitant]
     Active Substance: ATENOLOL
     Route: 065
  4. ATORVASTATIN [Concomitant]
     Active Substance: ATORVASTATIN
     Route: 065
  5. AZITHROMYCIN [Concomitant]
     Active Substance: AZITHROMYCIN
     Route: 065
  6. MINERALS\VITAMINS [Concomitant]
     Active Substance: MINERALS\VITAMINS
     Route: 065
  7. DOXYCYCLINE [Concomitant]
     Active Substance: DOXYCYCLINE
     Route: 065
  8. FAMOTIDINE [Concomitant]
     Active Substance: FAMOTIDINE
     Route: 065
  9. GABAPENTIN [Concomitant]
     Active Substance: GABAPENTIN
     Route: 065
  10. LACTOBACILLUS ACIDOPHILUS [Concomitant]
     Active Substance: LACTOBACILLUS ACIDOPHILUS
     Route: 065
  11. LEVOFLOXACIN [Concomitant]
     Active Substance: LEVOFLOXACIN
     Route: 065
  12. PRILOSEC [Concomitant]
     Active Substance: OMEPRAZOLE MAGNESIUM
     Route: 065
  13. TETRACYCLINE [Concomitant]
     Active Substance: TETRACYCLINE
     Route: 065
  14. VITAMIN D3 [Concomitant]
     Active Substance: CHOLECALCIFEROL
     Route: 065

REACTIONS (2)
  - Neuropathy peripheral [Unknown]
  - Peripheral vascular disorder [Unknown]
